FAERS Safety Report 4895096-7 (Version None)
Quarter: 2006Q1

REPORT INFORMATION
  Report Type: 
  Country: None (occurrence: None)
  Receive Date: 20060130
  Receipt Date: 20060113
  Transmission Date: 20060701
  Serious: Yes (Hospitalization)
  Sender: FDA-Public Use
  Company Number: PHFR2006GB00539

PATIENT
  Sex: Female

DRUGS (1)
  1. DESFERAL [Suspect]
     Indication: CHELATION THERAPY
     Dosage: UNK, UNK
     Route: 065
     Dates: start: 20050701

REACTIONS (3)
  - KLEBSIELLA SEPSIS [None]
  - LAPAROSCOPY [None]
  - PERITONITIS [None]
